FAERS Safety Report 6330553-8 (Version None)
Quarter: 2009Q3

REPORT INFORMATION
  Report Type: 
  Country: None (occurrence: None)
  Receive Date: 20090826
  Receipt Date: 20090826
  Transmission Date: 20100115
  Serious: No
  Sender: FDA-Public Use
  Company Number: None

PATIENT

DRUGS (1)
  1. ZICAM GEL SWABS [Suspect]
     Indication: NASOPHARYNGITIS
     Dosage: 1 SWAB 4-6 HOURS NASAL
     Dates: start: 20051101, end: 20081201

REACTIONS (1)
  - ANOSMIA [None]
